FAERS Safety Report 7100079-2 (Version None)
Quarter: 2010Q4

REPORT INFORMATION
  Report Type: 
  Country: None (occurrence: None)
  Receive Date: 20101112
  Receipt Date: 20091021
  Transmission Date: 20110411
  Serious: No
  Sender: FDA-Public Use
  Company Number: A0812774A

PATIENT
  Age: 84 Year
  Sex: Female

DRUGS (4)
  1. COREG [Suspect]
     Dosage: 3.125MG TWICE PER DAY
     Route: 048
     Dates: start: 20091001
  2. PLAVIX [Concomitant]
  3. FOLIC ACID [Concomitant]
  4. PREVACID [Concomitant]

REACTIONS (6)
  - COLD SWEAT [None]
  - DISCOMFORT [None]
  - ERYTHEMA [None]
  - HYPERHIDROSIS [None]
  - PALLOR [None]
  - RESPIRATORY RATE INCREASED [None]
